FAERS Safety Report 17003807 (Version 1)
Quarter: 2019Q4

REPORT INFORMATION
  Report Type: Spontaneous
  Country: US (occurrence: US)
  Receive Date: 20191107
  Receipt Date: 20191107
  Transmission Date: 20200122
  Serious: No
  Sender: FDA-Public Use
  Company Number: US-GLENMARK PHARMACEUTICALS-2019GMK043339

PATIENT

DRUGS (3)
  1. COLESEVELAM HYDROCHLORIDE FOR ORAL SUSUPENSION [Suspect]
     Active Substance: COLESEVELAM HYDROCHLORIDE
     Dosage: 3.75 G, OD
     Route: 048
     Dates: start: 201909, end: 201909
  2. VITAMIN D [Concomitant]
     Active Substance: VITAMIN D NOS
     Indication: PRODUCT USED FOR UNKNOWN INDICATION
     Dosage: UNK, QW (ONCE A WEEK IN THE MORNING ON MONDAY^S)
     Route: 065
  3. COLESEVELAM HYDROCHLORIDE FOR ORAL SUSUPENSION [Suspect]
     Active Substance: COLESEVELAM HYDROCHLORIDE
     Indication: BLOOD CHOLESTEROL INCREASED
     Dosage: 3.75 G, OD (START DATE: YEARS AGO)
     Route: 048

REACTIONS (3)
  - Product taste abnormal [Unknown]
  - Product quality issue [Unknown]
  - Abdominal discomfort [Recovered/Resolved]

NARRATIVE: CASE EVENT DATE: 201909
